FAERS Safety Report 9730468 (Version 3)
Quarter: 2013Q4

REPORT INFORMATION
  Report Type: Report from Study
  Country: US (occurrence: US)
  Receive Date: 20131204
  Receipt Date: 20131216
  Transmission Date: 20140711
  Serious: Yes (Life-Threatening, Hospitalization, Other)
  Sender: FDA-Public Use
  Company Number: US-BRISTOL-MYERS SQUIBB COMPANY-19411172

PATIENT
  Sex: Male

DRUGS (15)
  1. IPILIMUMAB [Suspect]
     Indication: METASTATIC MALIGNANT MELANOMA
     Dosage: LAST DOSE:4OCT13
  2. AMBIEN [Concomitant]
     Route: 048
  3. CALCIUM + VITAMIN D [Concomitant]
     Indication: MINERAL SUPPLEMENTATION
     Dosage: 1DF= 1 TABLET.
     Route: 048
  4. COMPAZINE [Concomitant]
     Indication: NAUSEA
     Dosage: EVERY SIX HOURS.
     Route: 048
  5. COMPAZINE [Concomitant]
     Indication: VOMITING
     Dosage: EVERY SIX HOURS.
     Route: 048
  6. DOXEPIN [Concomitant]
     Indication: PRURITUS
     Dosage: EVERY 8 HOURS.
     Route: 048
  7. HEPARIN FLUSH [Concomitant]
     Dosage: 1DF= 200 UNITS NOS
     Route: 042
  8. DILAUDID [Concomitant]
     Indication: PAIN
     Dosage: EVERY 4 HOURS.
     Route: 048
  9. IMMODIUM [Concomitant]
     Indication: DIARRHOEA
     Route: 048
  10. ATIVAN [Concomitant]
     Indication: ANXIETY
     Dosage: EVERY 12 HOURS.
     Route: 048
  11. RESTORIL [Concomitant]
     Route: 048
  12. BENZONATATE [Concomitant]
     Indication: COUGH
     Dosage: EVERY 8 HOURS.
     Route: 048
  13. XANAX [Concomitant]
     Indication: ANXIETY
     Route: 048
  14. ZOFRAN [Concomitant]
     Indication: VOMITING
     Dosage: EVERY 8 HOURS.
     Route: 048
  15. ZOFRAN [Concomitant]
     Indication: NAUSEA
     Dosage: EVERY 8 HOURS.
     Route: 048

REACTIONS (5)
  - Sepsis [Recovering/Resolving]
  - Anaphylactic reaction [Recovering/Resolving]
  - Gait disturbance [Unknown]
  - Paraesthesia [Unknown]
  - Metastases to central nervous system [Unknown]
